FAERS Safety Report 7910429-2 (Version None)
Quarter: 2011Q4

REPORT INFORMATION
  Report Type: 
  Country: None (occurrence: None)
  Receive Date: 20111111
  Receipt Date: 20111101
  Transmission Date: 20120403
  Serious: Yes (Hospitalization)
  Sender: FDA-Public Use
  Company Number: US-VALEANT-2011VX003256

PATIENT
  Age: 75 Year
  Sex: Female

DRUGS (15)
  1. FLUCYTOSINE [Suspect]
     Route: 048
     Dates: start: 20110809, end: 20110906
  2. FLUCYTOSINE [Suspect]
     Route: 048
     Dates: start: 20110809, end: 20110906
  3. AMPHOTERICIN B [Suspect]
     Indication: MENINGITIS CRYPTOCOCCAL
     Route: 042
     Dates: start: 20110808, end: 20110901
  4. LANSOPRAZOLE [Concomitant]
     Route: 065
     Dates: start: 20110101
  5. URSO 250 [Concomitant]
     Route: 065
     Dates: start: 20110801
  6. FLUCYTOSINE [Suspect]
     Route: 048
     Dates: start: 20110809, end: 20110906
  7. AMPHOTERICIN B [Suspect]
     Route: 042
     Dates: start: 20110808, end: 20110901
  8. AMPHOTERICIN B [Suspect]
     Route: 042
     Dates: start: 20110902, end: 20110905
  9. AMPHOTERICIN B [Suspect]
     Route: 042
     Dates: start: 20110906, end: 20110906
  10. PREDNISOLONE [Concomitant]
     Route: 065
     Dates: start: 20100101
  11. FLUCYTOSINE [Suspect]
     Indication: MENINGITIS CRYPTOCOCCAL
     Route: 048
     Dates: start: 20110809, end: 20110906
  12. AMPHOTERICIN B [Suspect]
     Route: 042
     Dates: start: 20110902, end: 20110905
  13. LIVACT [Concomitant]
     Route: 065
     Dates: start: 20100101
  14. VITAMEDIN [Concomitant]
     Route: 065
     Dates: start: 20110601
  15. AMPHOTERICIN B [Suspect]
     Route: 042
     Dates: start: 20110906, end: 20110906

REACTIONS (12)
  - HYPOKALAEMIA [None]
  - DIARRHOEA [None]
  - PLATELET COUNT DECREASED [None]
  - COLITIS [None]
  - HAEMATOCHEZIA [None]
  - BLOOD UREA INCREASED [None]
  - GAMMA-GLUTAMYLTRANSFERASE INCREASED [None]
  - HAEMOGLOBIN DECREASED [None]
  - RENAL TUBULAR DISORDER [None]
  - ALANINE AMINOTRANSFERASE INCREASED [None]
  - ASPARTATE AMINOTRANSFERASE INCREASED [None]
  - URTICARIA [None]
